FAERS Safety Report 4551755-7 (Version None)
Quarter: 2005Q1

REPORT INFORMATION
  Report Type: 
  Country: None (occurrence: None)
  Receive Date: 20050113
  Receipt Date: 20050106
  Transmission Date: 20050727
  Serious: Yes (Other)
  Sender: FDA-Public Use
  Company Number: CA-GLAXOSMITHKLINE-A0539874A

PATIENT
  Sex: Female

DRUGS (1)
  1. PAXIL [Suspect]
     Indication: ANXIETY DISORDER
     Route: 048

REACTIONS (4)
  - FEELING ABNORMAL [None]
  - ILL-DEFINED DISORDER [None]
  - PUPILLARY DEFORMITY [None]
  - SUICIDAL IDEATION [None]
